FAERS Safety Report 13828182 (Version 1)
Quarter: 2017Q3

REPORT INFORMATION
  Report Type: Spontaneous
  Country: IT (occurrence: IT)
  Receive Date: 20170803
  Receipt Date: 20170803
  Transmission Date: 20171127
  Serious: Yes (Other)
  Sender: FDA-Public Use
  Company Number: IT-CIPLA LTD.-2017IT13436

PATIENT

DRUGS (10)
  1. CYCLOPHOSPHAMIDE. [Suspect]
     Active Substance: CYCLOPHOSPHAMIDE
     Indication: NEUROBLASTOMA RECURRENT
     Dosage: UNK, HIGH DOSE, SECOND LINE CHEMOTHERPAY
     Route: 065
  2. VINCRISTINE [Suspect]
     Active Substance: VINCRISTINE
     Indication: NEUROBLASTOMA RECURRENT
     Dosage: UNK, FIIRST LINE CHEMOTHERAPY
     Route: 065
  3. IFOSFAMIDE. [Suspect]
     Active Substance: IFOSFAMIDE
     Indication: NEUROBLASTOMA RECURRENT
     Dosage: UNK, FIRST LINE CHEMOTHERAPY
     Route: 065
  4. EPIADRIAMYCIN [Suspect]
     Active Substance: EPIRUBICIN
     Indication: NEUROBLASTOMA RECURRENT
     Dosage: UNK, FIRST LINE CHEMOTHERAPY
     Route: 065
  5. MELPHALAN. [Suspect]
     Active Substance: MELPHALAN
     Indication: NEUROBLASTOMA RECURRENT
     Dosage: UNK, HIGH DOSE, CONSOLIDATEION THERAPY
     Route: 065
  6. CARBOPLATIN. [Suspect]
     Active Substance: CARBOPLATIN
     Indication: NEUROBLASTOMA RECURRENT
     Dosage: UNK, SECOND LINE CHEMOTHERAPY
     Route: 065
  7. ETOPOSIDE. [Suspect]
     Active Substance: ETOPOSIDE
     Dosage: UNK, SECOND LINE CHEMOTHERAPY
     Route: 065
  8. ETOPOSIDE. [Suspect]
     Active Substance: ETOPOSIDE
     Indication: NEUROBLASTOMA RECURRENT
     Dosage: UNK, FIRST LINE CHEMOTHERAPY
     Route: 065
  9. CISPLATIN. [Suspect]
     Active Substance: CISPLATIN
     Indication: NEUROBLASTOMA RECURRENT
     Dosage: UNK, FIRST LINE CHEMOTHERAPY
     Route: 065
  10. MITOXANTRONE [Suspect]
     Active Substance: MITOXANTRONE HYDROCHLORIDE
     Indication: NEUROBLASTOMA RECURRENT
     Dosage: UNK, HIGH DOSE, CONSOLIDATION THERAPY
     Route: 065

REACTIONS (1)
  - Ameloblastoma [Unknown]
